FAERS Safety Report 11908316 (Version 1)
Quarter: 2016Q1

REPORT INFORMATION
  Report Type: Spontaneous
  Country: US (occurrence: US)
  Receive Date: 20160111
  Receipt Date: 20160111
  Transmission Date: 20160526
  Serious: Yes (Other)
  Sender: FDA-Public Use
  Company Number: US-PFIZER INC-2016001950

PATIENT
  Age: 9 Year
  Sex: Female

DRUGS (1)
  1. ETHOSUXIMIDE. [Suspect]
     Active Substance: ETHOSUXIMIDE
     Indication: SEIZURE

REACTIONS (4)
  - Treatment noncompliance [Unknown]
  - Product taste abnormal [Unknown]
  - Seizure [Unknown]
  - Condition aggravated [Unknown]
